FAERS Safety Report 13670621 (Version 1)
Quarter: 2017Q2

REPORT INFORMATION
  Report Type: Spontaneous
  Country: FR (occurrence: FR)
  Receive Date: 20170620
  Receipt Date: 20170620
  Transmission Date: 20170830
  Serious: Yes (Hospitalization, Other)
  Sender: FDA-Public Use
  Company Number: FR-MYLANLABS-2017M1036497

PATIENT

DRUGS (4)
  1. CISPLATIN MYLAN [Suspect]
     Active Substance: CISPLATIN
     Indication: LUNG NEOPLASM MALIGNANT
     Dosage: 75 MG/M2, CYCLE
     Route: 042
     Dates: start: 20170320
  2. M?THYLPREDNISOLONE MYLAN 120 MG, POUDRE POUR SOLUTION INJECTABLE [Suspect]
     Active Substance: METHYLPREDNISOLONE
     Indication: LUNG NEOPLASM MALIGNANT
     Dosage: 120 MG, CYCLE
     Route: 042
     Dates: start: 20170320
  3. ONDANSETRON KABI [Suspect]
     Active Substance: ONDANSETRON
     Indication: LUNG NEOPLASM MALIGNANT
     Dosage: 8 MG, CYCLE
     Route: 042
     Dates: start: 20170320
  4. DOCETAXEL ACCORD [Suspect]
     Active Substance: DOCETAXEL
     Indication: LUNG NEOPLASM MALIGNANT
     Dosage: 75 MG/M2, CYCLE
     Route: 042
     Dates: start: 20170320

REACTIONS (1)
  - Neutropenic colitis [Recovered/Resolved]

NARRATIVE: CASE EVENT DATE: 20170327
